FAERS Safety Report 5136143-7 (Version None)
Quarter: 2006Q4

REPORT INFORMATION
  Report Type: 
  Country: None (occurrence: None)
  Receive Date: 20061027
  Receipt Date: 20061019
  Transmission Date: 20070319
  Serious: Yes (Other)
  Sender: FDA-Public Use
  Company Number: SE-JNJFOC-20061004365

PATIENT
  Sex: Female

DRUGS (1)
  1. TRINOVUM [Suspect]
     Indication: CONTRACEPTION
     Route: 065

REACTIONS (1)
  - DEAFNESS BILATERAL [None]
